FAERS Safety Report 5472966-2 (Version None)
Quarter: 2007Q3

REPORT INFORMATION
  Report Type: 
  Country: None (occurrence: None)
  Receive Date: 20070927
  Receipt Date: 20070918
  Transmission Date: 20080115
  Serious: Yes (Disabling)
  Sender: FDA-Public Use
  Company Number: 2007AL003936

PATIENT
  Age: 56 Year
  Sex: Female

DRUGS (6)
  1. CITALOPRAM HYDROBROMIDE [Suspect]
     Indication: DEPRESSION
     Dosage: 20  MG;QD;PO
     Route: 048
     Dates: start: 20070726
  2. METHOTREXATE [Concomitant]
  3. INFIXIMAB [Concomitant]
  4. BENDROFLUMETHIAZIDE [Concomitant]
  5. CALCICHEW D3 [Concomitant]
  6. FOLIC ACID [Concomitant]

REACTIONS (3)
  - CONDITION AGGRAVATED [None]
  - DRUG INTERACTION [None]
  - RHEUMATOID ARTHRITIS [None]
